FAERS Safety Report 5521969-8 (Version None)
Quarter: 2007Q4

REPORT INFORMATION
  Report Type: 
  Country: None (occurrence: None)
  Receive Date: 20071120
  Receipt Date: 20070615
  Transmission Date: 20080405
  Serious: No
  Sender: FDA-Public Use
  Company Number: US-BRISTOL-MYERS SQUIBB COMPANY-13818679

PATIENT

DRUGS (1)
  1. AVALIDE [Suspect]
     Route: 048

REACTIONS (2)
  - HEADACHE [None]
  - PALPITATIONS [None]
